FAERS Safety Report 4353493-2 (Version None)
Quarter: 2004Q2

REPORT INFORMATION
  Report Type: 
  Country: None (occurrence: None)
  Receive Date: 20040505
  Receipt Date: 20040326
  Transmission Date: 20050107
  Serious: Yes (Disabling)
  Sender: FDA-Public Use
  Company Number: US-MERCK-0403USA02473

PATIENT
  Age: 74 Year
  Sex: Female

DRUGS (8)
  1. [THERAPY UNSPECIFIED] [Concomitant]
     Route: 065
  2. ASPIRIN [Concomitant]
     Route: 065
  3. ATENOLOL [Concomitant]
     Route: 065
  4. ZETIA [Suspect]
     Indication: BLOOD CHOLESTEROL INCREASED
     Route: 048
     Dates: start: 20031101
  5. GLUCOTROL [Concomitant]
     Route: 065
  6. ZOCOR [Suspect]
     Route: 048
     Dates: end: 20040412
  7. DIOVAN [Concomitant]
     Route: 065
  8. VITAMIN B COMPLEX [Concomitant]
     Route: 065

REACTIONS (6)
  - BLOOD CREATININE INCREASED [None]
  - BLOOD UREA INCREASED [None]
  - CATARACT [None]
  - DISEASE PROGRESSION [None]
  - MUSCLE CRAMP [None]
  - MYALGIA [None]
